FAERS Safety Report 4677580-4 (Version None)
Quarter: 2005Q2

REPORT INFORMATION
  Report Type: 
  Country: None (occurrence: None)
  Receive Date: 20050525
  Receipt Date: 20050525
  Transmission Date: 20051028
  Serious: No
  Sender: FDA-Public Use
  Company Number: None

PATIENT
  Age: 84 Year
  Sex: Female

DRUGS (10)
  1. FENTANYL [Suspect]
     Indication: PAIN
     Dosage: 25 MCG TRANSDERMAL Q 72 HRS
     Route: 062
     Dates: start: 20050505
  2. COZAAR [Concomitant]
  3. NORVASC [Concomitant]
  4. HYDROMORPHONE HCL [Concomitant]
  5. HYZAAR [Concomitant]
  6. SANCTURA [Concomitant]
  7. NYSTATIN [Concomitant]
  8. WARFARIN [Concomitant]
  9. ACIPHEX [Concomitant]
  10. CLONIDINE [Concomitant]

REACTIONS (3)
  - DRUG WITHDRAWAL SYNDROME [None]
  - PAIN [None]
  - THERAPEUTIC RESPONSE UNEXPECTED WITH DRUG SUBSTITUTION [None]
